FAERS Safety Report 8309433-4 (Version None)
Quarter: 2012Q2

REPORT INFORMATION
  Report Type: 
  Country: None (occurrence: None)
  Receive Date: 20120420
  Receipt Date: 20120411
  Transmission Date: 20120825
  Serious: Yes (Hospitalization, Other)
  Sender: FDA-Public Use
  Company Number: AUR-APL-2012-00763

PATIENT
  Age: 49 Year
  Sex: Male

DRUGS (5)
  1. LISINOPRIL (LISISNOPRIL) [Concomitant]
  2. GEMFIBROZIL [Concomitant]
  3. METFORMIN HCL [Suspect]
     Indication: SUICIDE ATTEMPT
     Dosage: (52 GM), ORAL
     Route: 048
  4. GLYBURIDE [Suspect]
     Indication: SUICIDE ATTEMPT
     Dosage: (350 MG), ORAL
     Route: 048
  5. VARDENAFIL (VARDENAFIL) [Concomitant]

REACTIONS (27)
  - RENAL FAILURE ACUTE [None]
  - CONTINUOUS HAEMODIAFILTRATION [None]
  - HYPOTENSION [None]
  - MULTIPLE DRUG OVERDOSE INTENTIONAL [None]
  - HYPERGLYCAEMIA [None]
  - THROMBOCYTOPENIA [None]
  - TOXICITY TO VARIOUS AGENTS [None]
  - TINNITUS [None]
  - CEREBRAL ISCHAEMIA [None]
  - UNRESPONSIVE TO STIMULI [None]
  - TYMPANIC MEMBRANE DISORDER [None]
  - NAUSEA [None]
  - OTOTOXICITY [None]
  - EAR DISORDER [None]
  - SUICIDE ATTEMPT [None]
  - LACTIC ACIDOSIS [None]
  - HYPERNATRAEMIA [None]
  - OTITIS EXTERNA [None]
  - STAPHYLOCOCCUS TEST POSITIVE [None]
  - STREPTOCOCCUS TEST POSITIVE [None]
  - RESPIRATORY FAILURE [None]
  - HYPOGLYCAEMIA [None]
  - LEUKOCYTOSIS [None]
  - DEAFNESS NEUROSENSORY [None]
  - NECROSIS [None]
  - DIARRHOEA [None]
  - VERTIGO POSITIONAL [None]
